FAERS Safety Report 5454777-7 (Version None)
Quarter: 2007Q3

REPORT INFORMATION
  Report Type: 
  Country: None (occurrence: None)
  Receive Date: 20070917
  Receipt Date: 20070906
  Transmission Date: 20080115
  Serious: No
  Sender: FDA-Public Use
  Company Number: US-BOEHRINGER INGELHEIM PHARMACEUTICALS, INC.-2007-BP-20613BP

PATIENT
  Sex: Female

DRUGS (2)
  1. ZANTAC COOL MINT (TABLETS) [Suspect]
     Indication: DYSPEPSIA
     Route: 048
     Dates: start: 20070905, end: 20070906
  2. ZANTAC COOL MINT (TABLETS) [Suspect]

REACTIONS (2)
  - DRUG INEFFECTIVE [None]
  - NAUSEA [None]
